FAERS Safety Report 8814045 (Version 3)
Quarter: 2012Q4

REPORT INFORMATION
  Report Type: 
  Country: US (occurrence: US)
  Receive Date: 20120928
  Receipt Date: 20121019
  Transmission Date: 20130627
  Serious: Yes (Other)
  Sender: FDA-Public Use
  Company Number: US-PFIZER INC-2012236357

PATIENT
  Age: 52 Year
  Sex: Female
  Weight: 74.83 kg

DRUGS (11)
  1. TAPAZOLE [Suspect]
     Indication: THYROID DISORDER
     Dosage: 10 mg, 1x/day
     Route: 048
     Dates: start: 201202, end: 2012
  2. TAPAZOLE [Suspect]
     Indication: ENDOCRINE OPHTHALMOPATHY
     Dosage: 20 mg, 1x/day
     Route: 048
     Dates: start: 2012, end: 2012
  3. TAPAZOLE [Suspect]
     Dosage: 10 mg, 1x/day
     Route: 048
     Dates: start: 201205, end: 2012
  4. TAPAZOLE [Suspect]
     Dosage: 20 mg, 1x/day
     Route: 048
     Dates: start: 2012, end: 20120821
  5. TAPAZOLE [Suspect]
     Dosage: 15 mg, daily
     Route: 048
     Dates: start: 20120823, end: 2012
  6. TAPAZOLE [Suspect]
     Dosage: 30 mg, 1x/day
     Route: 048
     Dates: start: 20120904, end: 2012
  7. TAPAZOLE [Suspect]
     Dosage: 20 mg, 1x/day
     Route: 048
     Dates: start: 20121002
  8. PREDNISONE [Suspect]
     Indication: ENDOCRINE OPHTHALMOPATHY
     Dosage: UNK
     Dates: start: 201205, end: 2012
  9. METOPROLOL [Suspect]
     Indication: BLOOD PRESSURE ABNORMAL
     Dosage: UNK
     Dates: end: 2012
  10. COLESTYRAMINE [Suspect]
     Indication: ENDOCRINE OPHTHALMOPATHY
     Dosage: UNK, 3x/day
     Dates: start: 201205, end: 20120521
  11. PROPRANOLOL [Concomitant]
     Dosage: UNK

REACTIONS (20)
  - Lupus-like syndrome [Unknown]
  - Thyroid function test abnormal [Unknown]
  - Heart rate increased [Unknown]
  - Tetany [Unknown]
  - Atrial fibrillation [Unknown]
  - Swelling face [Unknown]
  - Musculoskeletal disorder [Unknown]
  - Hypothyroidism [Not Recovered/Not Resolved]
  - Muscle tightness [Unknown]
  - Gait disturbance [Unknown]
  - Abdominal distension [Unknown]
  - Dysstasia [Unknown]
  - Malaise [Unknown]
  - Weight increased [Unknown]
  - Pain [Unknown]
  - Malaise [Unknown]
  - Insomnia [Unknown]
  - Vitamin D decreased [Unknown]
  - Somnolence [Unknown]
  - Pain in extremity [Unknown]
